FAERS Safety Report 19679382 (Version 4)
Quarter: 2021Q4

REPORT INFORMATION
  Report Type: Spontaneous
  Country: US (occurrence: US)
  Receive Date: 20210810
  Receipt Date: 20211119
  Transmission Date: 20220303
  Serious: No
  Sender: FDA-Public Use
  Company Number: US-009507513-2108USA000863

PATIENT
  Sex: Male

DRUGS (2)
  1. KEYTRUDA [Suspect]
     Active Substance: PEMBROLIZUMAB
     Indication: Urethral cancer metastatic
     Dosage: UNKNOWN, EVERY 3 WEEKS
     Route: 042
     Dates: start: 20190615
  2. COVID-19 VACCINE [Concomitant]

REACTIONS (8)
  - Feeding disorder [Unknown]
  - Adverse drug reaction [Unknown]
  - Weight decreased [Unknown]
  - Urticaria [Unknown]
  - Fatigue [Unknown]
  - Pyrexia [Unknown]
  - Cough [Unknown]
  - Product use issue [Unknown]

NARRATIVE: CASE EVENT DATE: 20210101
